FAERS Safety Report 8132163-9 (Version None)
Quarter: 2012Q1

REPORT INFORMATION
  Report Type: 
  Country: None (occurrence: None)
  Receive Date: 20120213
  Receipt Date: 20120130
  Transmission Date: 20120608
  Serious: Yes (Hospitalization)
  Sender: FDA-Public Use
  Company Number: US-RB-034551-12

PATIENT
  Age: 57 Year
  Sex: Female

DRUGS (1)
  1. CEPACOL MAX NUMBING CHERRY [Suspect]
     Indication: PRODUCT USED FOR UNKNOWN INDICATION
     Dosage: TOOK 1 LOZENGE
     Route: 048
     Dates: start: 20120126

REACTIONS (1)
  - PHARYNGEAL OEDEMA [None]
